FAERS Safety Report 8111468-1 (Version None)
Quarter: 2012Q1

REPORT INFORMATION
  Report Type: 
  Country: None (occurrence: None)
  Receive Date: 20120203
  Receipt Date: 20120124
  Transmission Date: 20120608
  Serious: Yes (Other)
  Sender: FDA-Public Use
  Company Number: US-JNJFOC-20111104513

PATIENT
  Sex: Male
  Weight: 77.84 kg

DRUGS (9)
  1. MULTI-VITAMINS [Concomitant]
     Route: 048
  2. REMICADE [Suspect]
     Indication: CROHN'S DISEASE
     Dosage: START DATE ALSO REPORTED AS 09-FEB-2010
     Route: 042
     Dates: start: 20060825
  3. PREDNISONE TAB [Concomitant]
     Dates: end: 20110101
  4. BENADRYL [Concomitant]
     Route: 042
     Dates: start: 20060825
  5. PROAIR HFA [Concomitant]
     Route: 055
     Dates: start: 20060825
  6. IMURAN [Suspect]
     Indication: CROHN'S DISEASE
     Dosage: START DATE ALSO REPORTED AS 17-AUG-2011
     Route: 048
     Dates: start: 20060930
  7. ALBUTEROL [Concomitant]
     Indication: ASTHMA
     Route: 065
  8. ASPIR-81 [Concomitant]
     Route: 048
  9. ADVAIR DISKUS 100/50 [Concomitant]
     Dosage: DOSE: 250 MCG-50 MCG.
     Route: 045
     Dates: start: 20070322

REACTIONS (1)
  - MYOSITIS [None]
